FAERS Safety Report 5407404-9 (Version None)
Quarter: 2007Q3

REPORT INFORMATION
  Report Type: 
  Country: None (occurrence: None)
  Receive Date: 20070807
  Receipt Date: 20070731
  Transmission Date: 20080115
  Serious: No
  Sender: FDA-Public Use
  Company Number: NZ-ELI_LILLY_AND_COMPANY-NZ200707002510

PATIENT
  Age: 56 Year
  Sex: Male

DRUGS (2)
  1. CIALIS [Suspect]
     Indication: ERECTILE DYSFUNCTION
     Dosage: 20 MG, AS NEEDED
     Route: 048
     Dates: start: 20041130, end: 20070710
  2. INHIBACE [Concomitant]
     Dosage: 1.25 MG, EACH MORNING
     Route: 048

REACTIONS (2)
  - DYSPEPSIA [None]
  - VISION BLURRED [None]
